FAERS Safety Report 10242115 (Version 2)
Quarter: 2014Q2

REPORT INFORMATION
  Report Type: Spontaneous
  Country: DE (occurrence: None)
  Receive Date: 20140613
  Receipt Date: 20140619
  Transmission Date: 20141212
  Serious: Yes (Disabling, Other)
  Sender: FDA-Public Use
  Company Number: AUR-APL-2014-06338

PATIENT
  Age: 83 Year
  Sex: Female

DRUGS (3)
  1. MIRTAZAPINE 15MG [Suspect]
     Indication: PRODUCT USED FOR UNKNOWN INDICATION
     Route: 048
     Dates: start: 20140224, end: 20140306
  2. TAVOR [Suspect]
     Indication: PRODUCT USED FOR UNKNOWN INDICATION
     Route: 048
     Dates: start: 20140310, end: 20140311
  3. METFORMIN (METFORMIN) [Concomitant]

REACTIONS (6)
  - Circulatory collapse [None]
  - Supraventricular extrasystoles [None]
  - Ventricular extrasystoles [None]
  - Upper limb fracture [None]
  - Heart rate increased [None]
  - Blood pressure decreased [None]
